FAERS Safety Report 19288753 (Version 2)
Quarter: 2021Q2

REPORT INFORMATION
  Report Type: Report from Study
  Country: US (occurrence: US)
  Receive Date: 20210522
  Receipt Date: 20210628
  Transmission Date: 20210717
  Serious: Yes (Other)
  Sender: FDA-Public Use
  Company Number: NVSC2021US114464

PATIENT
  Age: 63 Year
  Sex: Female

DRUGS (1)
  1. PROMACTA [Suspect]
     Active Substance: ELTROMBOPAG OLAMINE
     Indication: IMMUNE THROMBOCYTOPENIA
     Dosage: UNK
     Route: 065

REACTIONS (11)
  - Blister [Unknown]
  - Product dose omission issue [Unknown]
  - Swelling [Unknown]
  - Gingival bleeding [Unknown]
  - Asthenia [Unknown]
  - Large intestinal haemorrhage [Unknown]
  - Foreign body sensation in eyes [Unknown]
  - Erythema [Unknown]
  - Fatigue [Unknown]
  - Joint swelling [Unknown]
  - Acne [Unknown]

NARRATIVE: CASE EVENT DATE: 20210617
